FAERS Safety Report 5794283-3 (Version None)
Quarter: 2008Q2

REPORT INFORMATION
  Report Type: 
  Country: None (occurrence: None)
  Receive Date: 20080625
  Receipt Date: 20080618
  Transmission Date: 20081010
  Serious: Yes (Other)
  Sender: FDA-Public Use
  Company Number: CHPA2008US10253

PATIENT
  Age: 64 Year
  Sex: Male
  Weight: 81.6 kg

DRUGS (4)
  1. EXCEDRIN (MIGRAINE) [Suspect]
     Indication: PAIN
     Dosage: 1 DF, BID, ORAL
     Route: 048
     Dates: start: 20080618, end: 20080618
  2. TOPROL-XL [Concomitant]
  3. AVALIDE [Concomitant]
  4. CLENDIL [Concomitant]

REACTIONS (2)
  - HEART RATE DECREASED [None]
  - MUSCLE TIGHTNESS [None]
